FAERS Safety Report 20617484 (Version 2)
Quarter: 2022Q2

REPORT INFORMATION
  Report Type: Spontaneous
  Country: US (occurrence: US)
  Receive Date: 20220321
  Receipt Date: 20220404
  Transmission Date: 20220721
  Serious: No
  Sender: FDA-Public Use
  Company Number: US-NOVARTISTESTPH-NVSC2022US063016

PATIENT
  Sex: Female

DRUGS (5)
  1. PROMACTA [Suspect]
     Active Substance: ELTROMBOPAG OLAMINE
     Indication: Myelodysplastic syndrome
     Dosage: 12.5 MG, DAILY
     Route: 048
     Dates: start: 202105
  2. PROMACTA [Suspect]
     Active Substance: ELTROMBOPAG OLAMINE
     Indication: Systemic lupus erythematosus
  3. PROMACTA [Suspect]
     Active Substance: ELTROMBOPAG OLAMINE
     Indication: Pulmonary arterial hypertension
  4. TADALAFIL [Concomitant]
     Active Substance: TADALAFIL
     Indication: Product used for unknown indication
     Dosage: 40 MG, DAILY
     Route: 065
  5. TADALAFIL [Concomitant]
     Active Substance: TADALAFIL
     Dosage: 20 MG
     Route: 065

REACTIONS (4)
  - Headache [Unknown]
  - Dizziness [Unknown]
  - Hypotension [Unknown]
  - Product use in unapproved indication [Unknown]
